FAERS Safety Report 10763733 (Version 1)
Quarter: 2015Q1

REPORT INFORMATION
  Report Type: Spontaneous
  Country: US (occurrence: US)
  Receive Date: 20150204
  Receipt Date: 20150204
  Transmission Date: 20150721
  Serious: Yes (Other)
  Sender: FDA-Public Use
  Company Number: US-TEVA-537348USA

PATIENT
  Sex: Female

DRUGS (1)
  1. COPAXONE [Suspect]
     Active Substance: GLATIRAMER ACETATE
     Indication: MULTIPLE SCLEROSIS
     Dates: start: 20141105

REACTIONS (9)
  - Stomach mass [Unknown]
  - Pain [Unknown]
  - Tremor [Recovered/Resolved]
  - Injection site reaction [Unknown]
  - Chills [Recovered/Resolved]
  - Headache [Recovered/Resolved]
  - Arthralgia [Recovered/Resolved]
  - Mass [Unknown]
  - Serum sickness [Recovered/Resolved]
